FAERS Safety Report 6933008-2 (Version None)
Quarter: 2010Q3

REPORT INFORMATION
  Report Type: 
  Country: None (occurrence: None)
  Receive Date: 20100818
  Receipt Date: 20100818
  Transmission Date: 20110219
  Serious: Yes (Hospitalization, Other)
  Sender: FDA-Public Use
  Company Number: None

PATIENT
  Age: 50 Year
  Sex: Male
  Weight: 76.6 kg

DRUGS (9)
  1. SORAFENIB 200MG ONYX PHARMACEUTICALS + BAYER PHARMACEUTICALS [Suspect]
     Indication: METASTATIC RENAL CELL CARCINOMA
     Dosage: 400MG TWICE DAILY ORAL
     Route: 048
     Dates: start: 20090713, end: 20091102
  2. TEMSIROLIMUS 25 MG/ML WYETH [Suspect]
     Indication: METASTATIC RENAL CELL CARCINOMA
     Dosage: 25MG WEEKLY INTRAVENOUS INFUSION
     Route: 042
     Dates: start: 20091123, end: 20091208
  3. FUROSEMIDE [Concomitant]
  4. LISINOPRIL [Concomitant]
  5. ADDERALL 10 [Concomitant]
  6. HYDROCODONE BITARTRATE AND ACETAMINOPHEN [Concomitant]
  7. CARVEDILOL [Concomitant]
  8. GABAPENTIN [Concomitant]
  9. AMITRIPTYLINE HCL [Concomitant]

REACTIONS (5)
  - CARDIAC FAILURE CONGESTIVE [None]
  - CARDIOMYOPATHY [None]
  - CHEST PAIN [None]
  - CONDITION AGGRAVATED [None]
  - INTERSTITIAL LUNG DISEASE [None]
